FAERS Safety Report 4989941-4 (Version None)
Quarter: 2006Q2

REPORT INFORMATION
  Report Type: 
  Country: None (occurrence: None)
  Receive Date: 20060428
  Receipt Date: 20060417
  Transmission Date: 20061013
  Serious: Yes (Other)
  Sender: FDA-Public Use
  Company Number: GXKR2006IR02134

PATIENT
  Age: 33 Year
  Sex: Female

DRUGS (1)
  1. DEXAMETHASONE [Suspect]
     Dosage: BID, OPTHALMIC
     Route: 047

REACTIONS (3)
  - INTRAOCULAR PRESSURE INCREASED [None]
  - MYOPIA [None]
  - VISUAL ACUITY REDUCED [None]
